FAERS Safety Report 20610149 (Version 1)
Quarter: 2022Q1

REPORT INFORMATION
  Report Type: Other
  Country: CA (occurrence: CA)
  Receive Date: 20220318
  Receipt Date: 20220318
  Transmission Date: 20220423
  Serious: Yes (Hospitalization, Other)
  Sender: FDA-Public Use
  Company Number: CA-CELLTRION INC.-2022CA002987

PATIENT

DRUGS (8)
  1. RITUXIMAB [Suspect]
     Active Substance: RITUXIMAB
     Indication: Encephalitis autoimmune
     Dosage: 1000.0 MILLIGRAM
     Route: 042
  2. ACTEMRA [Suspect]
     Active Substance: TOCILIZUMAB
     Indication: Encephalitis autoimmune
     Dosage: 310.0 MILLIGRAM, 1 EVERY 1 MONTHS
     Route: 042
  3. CALCIUM [Concomitant]
     Active Substance: CALCIUM
  4. PANTOPRAZOLE [Concomitant]
     Active Substance: PANTOPRAZOLE
  5. PREDNISONE [Concomitant]
     Active Substance: PREDNISONE
  6. QUETIAPINE [Concomitant]
     Active Substance: QUETIAPINE
  7. QUETIAPINE FUMARATE [Concomitant]
     Active Substance: QUETIAPINE FUMARATE
  8. VALPROIC ACID [Concomitant]
     Active Substance: VALPROIC ACID

REACTIONS (13)
  - Aphthous ulcer [Recovered/Resolved]
  - Blood pressure diastolic abnormal [Recovered/Resolved]
  - Blood pressure diastolic increased [Recovered/Resolved]
  - Injection site extravasation [Recovered/Resolved]
  - Neurological symptom [Recovered/Resolved]
  - Oxygen saturation decreased [Recovered/Resolved]
  - Psychotic disorder [Recovered/Resolved]
  - Weight increased [Recovered/Resolved]
  - Headache [Recovered/Resolved]
  - Heart rate increased [Recovered/Resolved]
  - Therapeutic response shortened [Recovered/Resolved]
  - Off label use [Recovered/Resolved]
  - Off label use [Unknown]
